FAERS Safety Report 5352593-8 (Version None)
Quarter: 2007Q2

REPORT INFORMATION
  Report Type: 
  Country: None (occurrence: None)
  Receive Date: 20070611
  Receipt Date: 20070530
  Transmission Date: 20071010
  Serious: Yes (Other)
  Sender: FDA-Public Use
  Company Number: JP-ROCHE-491015

PATIENT
  Age: 79 Year
  Sex: Male
  Weight: 48 kg

DRUGS (8)
  1. TAMIFLU [Suspect]
     Route: 048
     Dates: start: 20070305, end: 20070308
  2. ASPIRIN [Concomitant]
     Route: 048
  3. RENIVACE [Concomitant]
     Dosage: TRADE NAME REPORTED AS RENIVEZE.
     Route: 048
  4. AMLODIN [Concomitant]
     Route: 048
  5. MELBIN [Concomitant]
     Route: 048
  6. CEROCRAL [Concomitant]
     Route: 048
  7. KAKKON-TO [Concomitant]
     Dosage: FORM REPORTED AS FINE GRANULES.
     Route: 048
     Dates: start: 20070305, end: 20070308
  8. TRANSAMIN [Concomitant]
     Route: 048
     Dates: start: 20070305, end: 20070308

REACTIONS (2)
  - HALLUCINATION [None]
  - ROAD TRAFFIC ACCIDENT [None]
